FAERS Safety Report 9473920 (Version 2)
Quarter: 2013Q3

REPORT INFORMATION
  Report Type: Spontaneous
  Country: US (occurrence: US)
  Receive Date: 20130823
  Receipt Date: 20130823
  Transmission Date: 20140515
  Serious: No
  Sender: FDA-Public Use
  Company Number: US-BRISTOL-MYERS SQUIBB COMPANY-17141151

PATIENT
  Age: 58 Year
  Sex: Female
  Weight: 86.17 kg

DRUGS (4)
  1. SPRYCEL [Suspect]
     Indication: CHRONIC MYELOID LEUKAEMIA
     Dosage: INTER-NOV12,RESUMED-DEC12
     Dates: start: 201112
  2. CYMBALTA [Concomitant]
  3. ATENOLOL [Concomitant]
  4. MULTIVITAMIN [Concomitant]

REACTIONS (2)
  - Pleural effusion [Unknown]
  - Spondylitis [Unknown]
